FAERS Safety Report 10345348 (Version 1)
Quarter: 2014Q3

REPORT INFORMATION
  Report Type: Spontaneous
  Country: CH (occurrence: None)
  Receive Date: 20140723
  Receipt Date: 20140723
  Transmission Date: 20150326
  Serious: Yes (Hospitalization)
  Sender: FDA-Public Use
  Company Number: 2014HINLIT0645

PATIENT
  Age: 38 Year
  Sex: Female

DRUGS (5)
  1. MIRTAZAPINE (MIRTAZAPINE) [Suspect]
     Active Substance: MIRTAZAPINE
     Indication: DEPRESSION
     Dosage: AT BED TIME
  2. MIRTAZAPINE (MIRTAZAPINE) [Suspect]
     Active Substance: MIRTAZAPINE
     Indication: SLEEP DISORDER
     Dosage: AT BED TIME
  3. ESCITALOPRAM [Suspect]
     Active Substance: ESCITALOPRAM OXALATE
     Indication: MAJOR DEPRESSION
  4. ESCITALOPRAM [Suspect]
     Active Substance: ESCITALOPRAM OXALATE
     Indication: POST-TRAUMATIC STRESS DISORDER
  5. LORAZEPAM (LORAZEPAM) [Concomitant]
     Active Substance: LORAZEPAM

REACTIONS (12)
  - Toxicity to various agents [None]
  - Persecutory delusion [None]
  - Serotonin syndrome [None]
  - Hyperreflexia [None]
  - Cerebellar syndrome [None]
  - Sleep disorder [None]
  - Irritability [None]
  - Tremor [None]
  - Clonus [None]
  - Abdominal pain [None]
  - Diarrhoea [None]
  - Drug interaction [None]
